FAERS Safety Report 9264056 (Version 2)
Quarter: 2013Q3

REPORT INFORMATION
  Report Type: Spontaneous
  Country: US (occurrence: US)
  Receive Date: 20130430
  Receipt Date: 20130930
  Transmission Date: 20140515
  Serious: Yes (Death, Hospitalization, Other)
  Sender: FDA-Public Use
  Company Number: US-B.I. PHARMACEUTICALS,INC./RIDGEFIELD-2013-BI-11718BP

PATIENT
  Age: 79 Year
  Sex: Female
  Weight: 63.5 kg

DRUGS (11)
  1. PRADAXA [Suspect]
     Indication: ANTICOAGULANT THERAPY
     Dosage: 300 MG
     Route: 048
     Dates: start: 20110324
  2. PRADAXA [Suspect]
     Indication: ATRIAL FIBRILLATION
  3. PRADAXA [Suspect]
     Indication: CEREBROVASCULAR ACCIDENT PROPHYLAXIS
  4. LASIX [Concomitant]
     Dosage: 80 MG
     Route: 048
  5. NEURONTIN [Concomitant]
     Dosage: 1200 MG
     Route: 048
  6. HYDRALAZINE [Concomitant]
     Dosage: 40 MG
     Route: 048
  7. IMDUR [Concomitant]
     Dosage: 30 MG
     Route: 048
  8. METOPROLOL [Concomitant]
     Dosage: 50 MG
     Route: 048
  9. OMEPRAZOLE [Concomitant]
     Dosage: 20 MG
     Route: 048
  10. SIMVASTATIN [Concomitant]
     Dosage: 40 MG
     Route: 048
  11. OXYGEN [Concomitant]
     Indication: HYPOXIA
     Dates: start: 2010

REACTIONS (12)
  - Cerebrovascular accident [Fatal]
  - Subarachnoid haemorrhage [Fatal]
  - Lower gastrointestinal haemorrhage [Unknown]
  - Haemorrhagic anaemia [Unknown]
  - Wound haemorrhage [Unknown]
  - Renal failure acute [Unknown]
  - Fall [Unknown]
  - Respiratory failure [Unknown]
  - Contusion [Unknown]
  - Ecchymosis [Unknown]
  - Mouth haemorrhage [Unknown]
  - Haematoma [Unknown]
